FAERS Safety Report 22030681 (Version 2)
Quarter: 2023Q1

REPORT INFORMATION
  Report Type: Spontaneous
  Country: US (occurrence: US)
  Receive Date: 20230223
  Receipt Date: 20230310
  Transmission Date: 20230418
  Serious: Yes (Other)
  Sender: FDA-Public Use
  Company Number: US-TEVA-2023-US-2857331

PATIENT
  Age: 59 Year
  Sex: Female

DRUGS (24)
  1. BUPROPION [Interacting]
     Active Substance: BUPROPION
     Indication: Major depression
     Dosage: 300 MILLIGRAM DAILY; ONCE DAILY
     Route: 065
     Dates: end: 202210
  2. BUPROPION [Interacting]
     Active Substance: BUPROPION
     Indication: Generalised anxiety disorder
  3. DOXEPIN [Interacting]
     Active Substance: DOXEPIN
     Indication: Major depression
     Dosage: 75 MILLIGRAM DAILY; RECEIVED AT NIGHT, ONCE DAILY
     Route: 065
     Dates: end: 202011
  4. DOXEPIN [Interacting]
     Active Substance: DOXEPIN
     Indication: Generalised anxiety disorder
  5. FLUOXETINE [Interacting]
     Active Substance: FLUOXETINE HYDROCHLORIDE
     Indication: Major depression
     Dosage: 40 MILLIGRAM DAILY; ONCE DAILY
     Route: 065
  6. FLUOXETINE [Interacting]
     Active Substance: FLUOXETINE HYDROCHLORIDE
     Indication: Generalised anxiety disorder
  7. DILTIAZEM [Interacting]
     Active Substance: DILTIAZEM
     Indication: Cardiomyopathy
     Dosage: 120 MILLIGRAM DAILY; RECEIVED AT NIGHT, ONCE DAILY
     Route: 065
  8. HYDROCODONE [Interacting]
     Active Substance: HYDROCODONE
     Indication: Pain
     Dosage: 40 MILLIGRAM DAILY; 10MG FOUR TIMES A DAY
     Route: 065
     Dates: end: 202109
  9. ACETAMINOPHEN [Concomitant]
     Active Substance: ACETAMINOPHEN
     Indication: Pain
     Dosage: 1300 MILLIGRAM DAILY; 325MG FOUR TIMES A DAY
     Route: 065
  10. BACLOFEN [Concomitant]
     Active Substance: BACLOFEN
     Indication: Muscle spasms
     Dosage: 40 MILLIGRAM DAILY; 10MG EVERY 6 HOURS AS NEEDED
     Route: 065
  11. ALBUTEROL\IPRATROPIUM [Concomitant]
     Active Substance: ALBUTEROL\IPRATROPIUM
     Indication: Asthma
     Dosage: 2.5-0.5 MG/3ML, AS NEEDED
     Route: 065
  12. MONTELUKAST [Concomitant]
     Active Substance: MONTELUKAST SODIUM
     Indication: Asthma
     Dosage: 10 MILLIGRAM DAILY; RECEIVED AT NIGHT, ONCE DAILY
     Route: 065
  13. ATORVASTATIN [Concomitant]
     Active Substance: ATORVASTATIN
     Indication: Hyperlipidaemia
     Dosage: 80 MILLIGRAM DAILY; RECEIVED AT NIGHT ONCE DAILY
     Route: 065
  14. ASPIRIN [Concomitant]
     Active Substance: ASPIRIN
     Indication: Cardiomyopathy
     Dosage: 81 MILLIGRAM DAILY; ONCE DAILY
     Route: 065
  15. FUROSEMIDE [Concomitant]
     Active Substance: FUROSEMIDE
     Indication: Cardiomyopathy
     Dosage: 40 MILLIGRAM DAILY; ONCE DAILY
     Route: 065
  16. LOSARTAN [Concomitant]
     Active Substance: LOSARTAN
     Indication: Cardiomyopathy
     Dosage: 25 MILLIGRAM DAILY; ONCE DAILY
     Route: 065
  17. METFORMIN [Concomitant]
     Active Substance: METFORMIN HYDROCHLORIDE
     Indication: Diabetes mellitus
     Dosage: 2000 MILLIGRAM DAILY; 1000MG TWICE DAILY
     Route: 065
  18. SITAGLIPTIN [Concomitant]
     Active Substance: SITAGLIPTIN
     Indication: Diabetes mellitus
     Dosage: 100 MILLIGRAM DAILY; ONCE DAILY
     Route: 065
  19. GLIPIZIDE [Concomitant]
     Active Substance: GLIPIZIDE
     Indication: Diabetes mellitus
     Dosage: 5 MILLIGRAM DAILY; ONCE DAILY
     Route: 065
  20. GABAPENTIN [Concomitant]
     Active Substance: GABAPENTIN
     Indication: Neuropathy peripheral
     Dosage: 3200 MILLIGRAM DAILY; 800MG FOUR TIMES A DAY
     Route: 065
  21. LEVOTHYROXINE [Concomitant]
     Active Substance: LEVOTHYROXINE
     Indication: Hypothyroidism
     Dosage: 50 NANOGRAM DAILY; ONCE DAILY
     Route: 065
  22. PRAMIPEXOLE [Concomitant]
     Active Substance: PRAMIPEXOLE
     Indication: Restless legs syndrome
     Dosage: 3 MILLIGRAM DAILY; 1MG THREE TIMES A DAY
     Route: 065
  23. CALCIUM CARBONATE [Concomitant]
     Active Substance: CALCIUM CARBONATE
     Indication: Hypovitaminosis
     Dosage: 1250 MILLIGRAM DAILY; ONCE DAILY
     Route: 065
  24. FERROUS SULFATE [Concomitant]
     Active Substance: FERROUS SULFATE
     Indication: Hypovitaminosis
     Dosage: 325 MILLIGRAM DAILY; ONCE DAILY
     Route: 065

REACTIONS (5)
  - Fall [Recovered/Resolved]
  - Joint injury [Recovered/Resolved]
  - Sedation complication [Recovered/Resolved]
  - Drug-genetic interaction [Unknown]
  - Drug interaction [Unknown]
